FAERS Safety Report 9059753 (Version 1)
Quarter: 2013Q1

REPORT INFORMATION
  Report Type: Spontaneous
  Country: US (occurrence: None)
  Receive Date: 20130206
  Receipt Date: 20130206
  Transmission Date: 20140127
  Serious: Yes (Hospitalization, Other)
  Sender: FDA-Public Use
  Company Number: None

PATIENT
  Age: 59 Year
  Sex: Female
  Weight: 67.13 kg

DRUGS (2)
  1. BENICAR HCT [Suspect]
     Indication: HYPERTENSION
     Dosage: 1 TABLET
     Route: 048
     Dates: start: 20080301, end: 20121214
  2. BENICAR HCT [Suspect]
     Indication: OEDEMA
     Dosage: 1 TABLET
     Route: 048
     Dates: start: 20080301, end: 20121214

REACTIONS (24)
  - Diarrhoea [None]
  - No therapeutic response [None]
  - Nausea [None]
  - Dizziness [None]
  - Hypophagia [None]
  - Fluid intake reduced [None]
  - Asthenia [None]
  - Weight decreased [None]
  - Irritable bowel syndrome [None]
  - Hypotension [None]
  - Renal failure acute [None]
  - Dehydration [None]
  - Blood potassium decreased [None]
  - Large intestine polyp [None]
  - Gastrointestinal tract irritation [None]
  - Abdominal distension [None]
  - Colitis microscopic [None]
  - Fluid retention [None]
  - Vomiting [None]
  - Oedema [None]
  - Blood pressure increased [None]
  - Ageusia [None]
  - Anosmia [None]
  - Decreased appetite [None]
